FAERS Safety Report 9861082 (Version 12)
Quarter: 2015Q1

REPORT INFORMATION
  Report Type: Spontaneous
  Country: US (occurrence: US)
  Receive Date: 20140202
  Receipt Date: 20150330
  Transmission Date: 20150721
  Serious: Yes (Disabling, Other)
  Sender: FDA-Public Use
  Company Number: US-ALLERGAN-1303220US

PATIENT
  Age: 35 Year
  Sex: Female
  Weight: 63.6 kg

DRUGS (13)
  1. BOTOX COSMETIC [Suspect]
     Active Substance: ONABOTULINUMTOXINA
     Dosage: UNK UNK, SINGLE
     Route: 030
     Dates: start: 20120802, end: 20120802
  2. KLONOPIN [Concomitant]
     Active Substance: CLONAZEPAM
     Indication: PRODUCT USED FOR UNKNOWN INDICATION
     Dosage: UNK
     Dates: end: 201409
  3. VITAMIN D [Concomitant]
     Active Substance: CHOLECALCIFEROL
     Indication: PRODUCT USED FOR UNKNOWN INDICATION
  4. VITAMINS [Concomitant]
     Active Substance: VITAMINS
  5. BOTOX COSMETIC [Suspect]
     Active Substance: ONABOTULINUMTOXINA
     Dosage: 25 UNITS, SINGLE
     Route: 030
     Dates: start: 20110401, end: 20110401
  6. BOTOX COSMETIC [Suspect]
     Active Substance: ONABOTULINUMTOXINA
     Dosage: UNK UNK, SINGLE
     Route: 030
     Dates: start: 20120413, end: 20120413
  7. BOTOX COSMETIC [Suspect]
     Active Substance: ONABOTULINUMTOXINA
     Dosage: UNK UNK, SINGLE
     Dates: start: 20111201, end: 20111201
  8. CRESTOR [Concomitant]
     Active Substance: ROSUVASTATIN CALCIUM
     Dosage: 5 MG, UNK
     Route: 048
  9. BOTOX COSMETIC [Suspect]
     Active Substance: ONABOTULINUMTOXINA
     Dosage: UNK UNK, SINGLE
     Route: 030
     Dates: start: 20110810, end: 20110810
  10. BOTOX COSMETIC [Suspect]
     Active Substance: ONABOTULINUMTOXINA
     Indication: SKIN WRINKLING
     Dosage: UNK, SINGLE
     Dates: start: 20121210, end: 20121210
  11. BOTOX COSMETIC [Suspect]
     Active Substance: ONABOTULINUMTOXINA
     Indication: SKIN WRINKLING
     Dosage: UNK UNK, SINGLE
     Route: 030
     Dates: start: 20121115, end: 20121115
  12. BOTOX [Suspect]
     Active Substance: ONABOTULINUMTOXINA
     Indication: HYPERHIDROSIS
     Dosage: 50 UNITS, SINGLE
     Route: 030
     Dates: start: 20130201, end: 20130201
  13. FISH OIL [Concomitant]
     Active Substance: FISH OIL

REACTIONS (37)
  - Immune system disorder [Unknown]
  - Dizziness [Recovering/Resolving]
  - Nasal turbinate hypertrophy [Recovering/Resolving]
  - Chest pain [Recovered/Resolved]
  - Head injury [Unknown]
  - Cognitive disorder [Unknown]
  - Vision blurred [Unknown]
  - Pneumonia [Recovering/Resolving]
  - Fatigue [Recovering/Resolving]
  - Panic attack [Unknown]
  - Nasal obstruction [Unknown]
  - Peripheral coldness [Recovering/Resolving]
  - Tachycardia [Unknown]
  - Urinary tract disorder [Unknown]
  - Pharyngeal inflammation [Recovered/Resolved]
  - Herpes simplex [Unknown]
  - Weight decreased [Unknown]
  - Oedema mucosal [Recovering/Resolving]
  - Hot flush [Unknown]
  - Asthma [Recovering/Resolving]
  - Pain [Unknown]
  - Hyperhidrosis [Unknown]
  - Headache [Unknown]
  - Suffocation feeling [Unknown]
  - Burning sensation [Unknown]
  - Antinuclear antibody positive [Unknown]
  - Blood disorder [Unknown]
  - Fall [Unknown]
  - Muscular weakness [Unknown]
  - Diarrhoea [Unknown]
  - Insomnia [Unknown]
  - Drug hypersensitivity [Unknown]
  - Dysphagia [Unknown]
  - Depression [Unknown]
  - Upper-airway cough syndrome [Unknown]
  - Blood cholesterol increased [Unknown]
  - Ventricular extrasystoles [Unknown]

NARRATIVE: CASE EVENT DATE: 201204
